FAERS Safety Report 8987457 (Version 2)
Quarter: 2014Q2

REPORT INFORMATION
  Report Type: Spontaneous
  Country: US (occurrence: US)
  Receive Date: 20121227
  Receipt Date: 20131018
  Transmission Date: 20141212
  Serious: Yes (Hospitalization, Other)
  Sender: FDA-Public Use
  Company Number: US-PFIZER INC-2012328552

PATIENT
  Age: 61 Year
  Sex: Female

DRUGS (5)
  1. METHYLPREDNISOLONE SODIUM SUCCINATE [Suspect]
     Indication: GLOMERULONEPHRITIS RAPIDLY PROGRESSIVE
     Dosage: 1 GM/ DAY FOR 3 DAYS
     Route: 042
  2. PREDNISONE [Suspect]
     Indication: GLOMERULONEPHRITIS RAPIDLY PROGRESSIVE
     Dosage: UNK
  3. CYCLOPHOSPHAMIDE [Concomitant]
     Indication: GLOMERULONEPHRITIS RAPIDLY PROGRESSIVE
     Dosage: 870 MG (0.5 G/M2)
  4. SILDENAFIL [Concomitant]
     Indication: PULMONARY HYPERTENSION
  5. AMBRISENTAN [Concomitant]
     Indication: PULMONARY HYPERTENSION

REACTIONS (3)
  - Convulsion [Unknown]
  - Substance-induced psychotic disorder [Unknown]
  - Mental status changes [Unknown]
